FAERS Safety Report 14374922 (Version 1)
Quarter: 2018Q1

REPORT INFORMATION
  Report Type: Spontaneous
  Country: FR (occurrence: FR)
  Receive Date: 20180111
  Receipt Date: 20180111
  Transmission Date: 20180509
  Serious: Yes (Hospitalization)
  Sender: FDA-Public Use
  Company Number: FR-AUROBINDO-AUR-APL-2018-001276

PATIENT
  Age: 17 Year
  Sex: Male
  Weight: 80 kg

DRUGS (3)
  1. PARACETAMOL [Suspect]
     Active Substance: ACETAMINOPHEN
     Indication: SUICIDE ATTEMPT
     Dosage: 5000 MG, UNK
     Route: 048
     Dates: start: 20171116, end: 20171116
  2. TARKA [Suspect]
     Active Substance: TRANDOLAPRIL\VERAPAMIL HYDROCHLORIDE
     Indication: SUICIDE ATTEMPT
     Dosage: 2.4 G, UNK
     Route: 048
     Dates: start: 20171116, end: 20171116
  3. XARELTO [Suspect]
     Active Substance: RIVAROXABAN
     Indication: SUICIDE ATTEMPT
     Dosage: 10 DF, UNK
     Route: 048
     Dates: start: 20171116, end: 20171116

REACTIONS (2)
  - Shock [Recovered/Resolved]
  - Atrioventricular block complete [Recovered/Resolved]

NARRATIVE: CASE EVENT DATE: 20171116
